APPROVED DRUG PRODUCT: XELODA
Active Ingredient: CAPECITABINE
Strength: 150MG
Dosage Form/Route: TABLET;ORAL
Application: N020896 | Product #001
Applicant: CHEPLAPHARM ARZNEIMITTEL GMBH
Approved: Apr 30, 1998 | RLD: Yes | RS: No | Type: DISCN